FAERS Safety Report 6305358-4 (Version None)
Quarter: 2009Q3

REPORT INFORMATION
  Report Type: 
  Country: None (occurrence: None)
  Receive Date: 20090807
  Receipt Date: 20090722
  Transmission Date: 20100115
  Serious: Yes (Death)
  Sender: FDA-Public Use
  Company Number: 2009PV000058

PATIENT
  Age: 58 Year
  Sex: Male

DRUGS (4)
  1. DEPOCYT [Suspect]
     Indication: PROPHYLACTIC CHEMOTHERAPY
     Dosage: 50 MG; X2; INTH
     Route: 037
     Dates: start: 20090101, end: 20090429
  2. METHOTREXATE [Suspect]
     Dosage: 1650 MG; 1X; IVDRP
     Route: 041
     Dates: start: 20090429, end: 20090430
  3. METOTREXATE [Concomitant]
  4. DEXAMETHASONE [Concomitant]

REACTIONS (4)
  - BRAIN OEDEMA [None]
  - CEREBRAL INFARCTION [None]
  - LOSS OF CONSCIOUSNESS [None]
  - NEUROTOXICITY [None]
